FAERS Safety Report 23535458 (Version 1)
Quarter: 2024Q1

REPORT INFORMATION
  Report Type: Spontaneous
  Country: JP (occurrence: None)
  Receive Date: 20240218
  Receipt Date: 20240218
  Transmission Date: 20240409
  Serious: Yes (Hospitalization, Other)
  Sender: FDA-Public Use
  Company Number: 2023A291591

PATIENT
  Age: 59 Year
  Sex: Male
  Weight: 73 kg

DRUGS (3)
  1. IMFINZI [Suspect]
     Active Substance: DURVALUMAB
     Indication: Non-small cell lung cancer
     Route: 041
     Dates: start: 20230906, end: 20231115
  2. LOSARTAN POTASSIUM [Concomitant]
     Active Substance: LOSARTAN POTASSIUM
     Indication: Hypertension
     Route: 048
  3. ALLOID G [Concomitant]
     Active Substance: SODIUM ALGINATE
     Dosage: DOSE UNKNOWN
     Dates: start: 20230724

REACTIONS (4)
  - Radiation pneumonitis [Unknown]
  - Interstitial lung disease [Recovering/Resolving]
  - Pneumonia bacterial [Unknown]
  - Infection [Unknown]

NARRATIVE: CASE EVENT DATE: 20231129
